FAERS Safety Report 13639392 (Version 1)
Quarter: 2017Q2

REPORT INFORMATION
  Report Type: Spontaneous
  Country: US (occurrence: US)
  Receive Date: 20170609
  Receipt Date: 20170609
  Transmission Date: 20170830
  Serious: No
  Sender: FDA-Public Use
  Company Number: US-ROCHE-1015509

PATIENT
  Age: 56 Year
  Sex: Female

DRUGS (3)
  1. RECLAST [Concomitant]
     Active Substance: ZOLEDRONIC ACID
     Indication: OSTEOPOROSIS
     Route: 042
     Dates: start: 20111024
  2. KLONOPIN [Suspect]
     Active Substance: CLONAZEPAM
     Indication: FACIAL PARALYSIS
     Route: 065
     Dates: start: 20111024, end: 20111117
  3. FLUCONAZOLE. [Concomitant]
     Active Substance: FLUCONAZOLE
     Route: 048

REACTIONS (6)
  - Palpitations [Unknown]
  - Muscle disorder [Unknown]
  - Feeling jittery [Unknown]
  - Anxiety [Unknown]
  - Tremor [Unknown]
  - Insomnia [Unknown]

NARRATIVE: CASE EVENT DATE: 20121101
